FAERS Safety Report 17409462 (Version 4)
Quarter: 2021Q4

REPORT INFORMATION
  Report Type: Spontaneous
  Country: GR (occurrence: GR)
  Receive Date: 20200212
  Receipt Date: 20211027
  Transmission Date: 20220303
  Serious: Yes (Hospitalization)
  Sender: FDA-Public Use
  Company Number: GR-ROCHE-2528781

PATIENT
  Sex: Female
  Weight: 60 kg

DRUGS (108)
  1. NORVASC [Suspect]
     Active Substance: AMLODIPINE BESYLATE
     Indication: Hypertension
     Route: 058
  2. NORVASC [Suspect]
     Active Substance: AMLODIPINE BESYLATE
     Indication: Diffuse large B-cell lymphoma
     Dosage: 1 CYCLE
     Route: 048
     Dates: start: 20190515, end: 20190516
  3. NORVASC [Suspect]
     Active Substance: AMLODIPINE BESYLATE
     Indication: Anaemia
     Route: 065
  4. NORVASC [Suspect]
     Active Substance: AMLODIPINE BESYLATE
     Indication: Non-Hodgkin^s lymphoma
  5. NORVASC [Suspect]
     Active Substance: AMLODIPINE BESYLATE
     Indication: Leukopenia
  6. ALBUMIN HUMAN [Suspect]
     Active Substance: ALBUMIN HUMAN
     Indication: Non-Hodgkin^s lymphoma
     Dosage: 50 MILLIGRAM, 1 CYCLE 50 MGX2
     Route: 042
     Dates: start: 20200110, end: 20200113
  7. ALBUMIN HUMAN [Suspect]
     Active Substance: ALBUMIN HUMAN
     Indication: Hypertension
     Route: 065
  8. ALBUMIN HUMAN [Suspect]
     Active Substance: ALBUMIN HUMAN
     Indication: Diffuse large B-cell lymphoma
  9. ALBUMIN HUMAN [Suspect]
     Active Substance: ALBUMIN HUMAN
     Indication: Anaemia
  10. ALBUMIN HUMAN [Suspect]
     Active Substance: ALBUMIN HUMAN
     Indication: Leukopenia
  11. CISPLATIN [Suspect]
     Active Substance: CISPLATIN
     Indication: Non-Hodgkin^s lymphoma
     Route: 058
  12. CISPLATIN [Suspect]
     Active Substance: CISPLATIN
     Dosage: 2 CYCLES
     Route: 042
     Dates: start: 20191119, end: 20200113
  13. CYCLOPHOSPHAMIDE\DOXORUBICIN\PREDNISONE\VINCRISTINE [Suspect]
     Active Substance: CYCLOPHOSPHAMIDE\DOXORUBICIN\PREDNISONE\VINCRISTINE
     Indication: Diffuse large B-cell lymphoma
     Dosage: 8 CYCLES
     Route: 065
     Dates: start: 20190513, end: 20191013
  14. CISPLATIN\CYTARABINE\ETOPOSIDE\METHYLPREDNISOLONE (ESHAP) [Suspect]
     Active Substance: CISPLATIN\CYTARABINE\ETOPOSIDE\METHYLPREDNISOLONE (ESHAP)
     Indication: Diffuse large B-cell lymphoma
     Dosage: 2 CYCLES
     Route: 065
     Dates: start: 20191113, end: 20191223
  15. LASIX [Suspect]
     Active Substance: FUROSEMIDE
     Indication: Non-Hodgkin^s lymphoma
     Dosage: 1 CYCLE
     Route: 042
     Dates: start: 20200110, end: 20200113
  16. LASIX [Suspect]
     Active Substance: FUROSEMIDE
     Indication: Anaemia
     Route: 065
  17. LASIX [Suspect]
     Active Substance: FUROSEMIDE
     Indication: Hypertension
  18. LASIX [Suspect]
     Active Substance: FUROSEMIDE
     Indication: Diffuse large B-cell lymphoma
  19. LASIX [Suspect]
     Active Substance: FUROSEMIDE
     Indication: Leukopenia
  20. CYTARABINE [Suspect]
     Active Substance: CYTARABINE
     Indication: Non-Hodgkin^s lymphoma
     Route: 058
  21. CYTARABINE [Suspect]
     Active Substance: CYTARABINE
     Indication: Leukopenia
     Dosage: 3 GRAM, 2 CYCLES
     Route: 042
     Dates: start: 20191123, end: 20200113
  22. CYTARABINE [Suspect]
     Active Substance: CYTARABINE
     Indication: Hypertension
     Route: 065
  23. CYTARABINE [Suspect]
     Active Substance: CYTARABINE
     Indication: Anaemia
  24. CYTARABINE [Suspect]
     Active Substance: CYTARABINE
     Indication: Diffuse large B-cell lymphoma
  25. ERYTHROPOIETIN [Suspect]
     Active Substance: ERYTHROPOIETIN
     Indication: Anaemia
     Dosage: 1 CYCLE
     Route: 058
     Dates: start: 20190523, end: 20200124
  26. VALTREX [Suspect]
     Active Substance: VALACYCLOVIR HYDROCHLORIDE
     Indication: Non-Hodgkin^s lymphoma
     Route: 058
  27. VALTREX [Suspect]
     Active Substance: VALACYCLOVIR HYDROCHLORIDE
     Indication: Anaemia
     Route: 048
     Dates: start: 20190513, end: 20190516
  28. VALTREX [Suspect]
     Active Substance: VALACYCLOVIR HYDROCHLORIDE
     Indication: Diffuse large B-cell lymphoma
     Route: 042
  29. VALTREX [Suspect]
     Active Substance: VALACYCLOVIR HYDROCHLORIDE
     Indication: Leukopenia
     Dosage: 1 CYCLE
     Route: 048
     Dates: start: 20200108, end: 20200113
  30. VALTREX [Suspect]
     Active Substance: VALACYCLOVIR HYDROCHLORIDE
     Indication: Hypertension
     Route: 065
  31. METHYLPREDNISOLONE [Suspect]
     Active Substance: METHYLPREDNISOLONE
     Indication: Product used for unknown indication
     Dosage: UNKNOWN
     Route: 065
  32. PREDNISONE [Suspect]
     Active Substance: PREDNISONE
     Indication: Leukopenia
     Dosage: UNK
     Route: 065
  33. PREDNISONE [Suspect]
     Active Substance: PREDNISONE
     Indication: Diffuse large B-cell lymphoma
  34. PREDNISONE [Suspect]
     Active Substance: PREDNISONE
     Indication: Non-Hodgkin^s lymphoma
  35. PREDNISONE [Suspect]
     Active Substance: PREDNISONE
     Indication: Anaemia
  36. PREDNISONE [Suspect]
     Active Substance: PREDNISONE
     Indication: Hypertension
  37. ALDACTONE [Suspect]
     Active Substance: SPIRONOLACTONE
     Indication: Non-Hodgkin^s lymphoma
     Route: 042
  38. ALDACTONE [Suspect]
     Active Substance: SPIRONOLACTONE
     Indication: Anaemia
     Dosage: 1 CYCLE
     Route: 048
     Dates: start: 20200105, end: 20200112
  39. ALDACTONE [Suspect]
     Active Substance: SPIRONOLACTONE
     Indication: Hypertension
     Route: 065
  40. ALDACTONE [Suspect]
     Active Substance: SPIRONOLACTONE
     Indication: Leukopenia
  41. ALDACTONE [Suspect]
     Active Substance: SPIRONOLACTONE
     Indication: Diffuse large B-cell lymphoma
  42. CYCLOPHOSPHAMIDE [Suspect]
     Active Substance: CYCLOPHOSPHAMIDE
     Indication: Diffuse large B-cell lymphoma
     Dosage: UNKNOWN
     Route: 065
  43. CYCLOPHOSPHAMIDE [Suspect]
     Active Substance: CYCLOPHOSPHAMIDE
     Indication: Anaemia
  44. CYCLOPHOSPHAMIDE [Suspect]
     Active Substance: CYCLOPHOSPHAMIDE
     Indication: Hypertension
  45. CYCLOPHOSPHAMIDE [Suspect]
     Active Substance: CYCLOPHOSPHAMIDE
     Indication: Non-Hodgkin^s lymphoma
  46. CYCLOPHOSPHAMIDE [Suspect]
     Active Substance: CYCLOPHOSPHAMIDE
     Indication: Leukopenia
  47. VINCRISTINE SULFATE [Suspect]
     Active Substance: VINCRISTINE SULFATE
     Indication: Hypertension
     Dosage: UNKNOWN
     Route: 065
  48. VINCRISTINE SULFATE [Suspect]
     Active Substance: VINCRISTINE SULFATE
     Indication: Anaemia
  49. VINCRISTINE SULFATE [Suspect]
     Active Substance: VINCRISTINE SULFATE
     Indication: Leukopenia
  50. VINCRISTINE SULFATE [Suspect]
     Active Substance: VINCRISTINE SULFATE
     Indication: Diffuse large B-cell lymphoma
  51. VINCRISTINE SULFATE [Suspect]
     Active Substance: VINCRISTINE SULFATE
     Indication: Non-Hodgkin^s lymphoma
  52. FILGRASTIM [Suspect]
     Active Substance: FILGRASTIM
     Indication: Leukopenia
     Route: 058
     Dates: start: 20190523, end: 20200117
  53. FILGRASTIM [Suspect]
     Active Substance: FILGRASTIM
     Indication: Non-Hodgkin^s lymphoma
     Route: 065
  54. FILGRASTIM [Suspect]
     Active Substance: FILGRASTIM
     Indication: Anaemia
  55. FILGRASTIM [Suspect]
     Active Substance: FILGRASTIM
     Indication: Hypertension
  56. FILGRASTIM [Suspect]
     Active Substance: FILGRASTIM
     Indication: Diffuse large B-cell lymphoma
  57. CANCIDAS [Suspect]
     Active Substance: CASPOFUNGIN ACETATE
     Indication: Non-Hodgkin^s lymphoma
     Route: 042
     Dates: start: 20200105, end: 20200113
  58. CANCIDAS [Suspect]
     Active Substance: CASPOFUNGIN ACETATE
     Indication: Diffuse large B-cell lymphoma
     Route: 065
  59. CANCIDAS [Suspect]
     Active Substance: CASPOFUNGIN ACETATE
     Indication: Hypertension
  60. CANCIDAS [Suspect]
     Active Substance: CASPOFUNGIN ACETATE
     Indication: Leukopenia
  61. CANCIDAS [Suspect]
     Active Substance: CASPOFUNGIN ACETATE
     Indication: Anaemia
  62. CUBICIN [Suspect]
     Active Substance: DAPTOMYCIN
     Indication: Non-Hodgkin^s lymphoma
     Dosage: 1 CYCLE
     Route: 042
     Dates: start: 20200102, end: 20200113
  63. CUBICIN [Suspect]
     Active Substance: DAPTOMYCIN
     Indication: Hypertension
     Route: 065
  64. CUBICIN [Suspect]
     Active Substance: DAPTOMYCIN
     Indication: Leukopenia
  65. CUBICIN [Suspect]
     Active Substance: DAPTOMYCIN
     Indication: Anaemia
  66. CUBICIN [Suspect]
     Active Substance: DAPTOMYCIN
     Indication: Diffuse large B-cell lymphoma
  67. VEPESID [Suspect]
     Active Substance: ETOPOSIDE
     Indication: Non-Hodgkin^s lymphoma
     Route: 058
  68. VEPESID [Suspect]
     Active Substance: ETOPOSIDE
     Indication: Anaemia
     Dosage: 90 MILLIGRAM, 2 CYCLE
     Route: 042
     Dates: start: 20191119, end: 20200113
  69. VEPESID [Suspect]
     Active Substance: ETOPOSIDE
     Indication: Diffuse large B-cell lymphoma
     Route: 065
  70. VEPESID [Suspect]
     Active Substance: ETOPOSIDE
     Indication: Leukopenia
  71. VEPESID [Suspect]
     Active Substance: ETOPOSIDE
     Indication: Hypertension
  72. CHLORPHENIRAMINE MALEATE [Suspect]
     Active Substance: CHLORPHENIRAMINE MALEATE
     Indication: Non-Hodgkin^s lymphoma
     Route: 042
  73. CHLORPHENIRAMINE MALEATE [Suspect]
     Active Substance: CHLORPHENIRAMINE MALEATE
     Indication: Leukopenia
     Dosage: 1 CYCLE
     Route: 048
     Dates: start: 20200110, end: 20200112
  74. CHLORPHENIRAMINE MALEATE [Suspect]
     Active Substance: CHLORPHENIRAMINE MALEATE
     Indication: Anaemia
     Route: 065
  75. CHLORPHENIRAMINE MALEATE [Suspect]
     Active Substance: CHLORPHENIRAMINE MALEATE
     Indication: Hypertension
  76. CHLORPHENIRAMINE MALEATE [Suspect]
     Active Substance: CHLORPHENIRAMINE MALEATE
     Indication: Diffuse large B-cell lymphoma
  77. MEROPENEM [Suspect]
     Active Substance: MEROPENEM
     Indication: Non-Hodgkin^s lymphoma
     Dosage: 1 CYCLE 2GX3
     Route: 042
     Dates: start: 20200103, end: 20200113
  78. MEROPENEM [Suspect]
     Active Substance: MEROPENEM
     Route: 065
  79. ERYTHROPOIETIN [Suspect]
     Active Substance: ERYTHROPOIETIN
     Indication: Hypertension
     Dosage: UNKNOWN
     Route: 065
  80. ERYTHROPOIETIN [Suspect]
     Active Substance: ERYTHROPOIETIN
     Indication: Diffuse large B-cell lymphoma
  81. ERYTHROPOIETIN [Suspect]
     Active Substance: ERYTHROPOIETIN
     Indication: Anaemia
  82. ERYTHROPOIETIN [Suspect]
     Active Substance: ERYTHROPOIETIN
     Indication: Leukopenia
  83. ERYTHROPOIETIN [Suspect]
     Active Substance: ERYTHROPOIETIN
     Indication: Non-Hodgkin^s lymphoma
  84. RITUXIMAB [Suspect]
     Active Substance: RITUXIMAB
     Indication: Product used for unknown indication
     Dosage: UNKNOWN
     Route: 065
  85. RITUXIMAB [Suspect]
     Active Substance: RITUXIMAB
     Indication: Diffuse large B-cell lymphoma
     Dosage: 8 CYCLES
     Route: 042
     Dates: start: 20190513, end: 20191013
  86. RITUXIMAB [Suspect]
     Active Substance: RITUXIMAB
     Dosage: 2 CYCLES
     Route: 042
     Dates: start: 20191113, end: 20191223
  87. MABTHERA [Suspect]
     Active Substance: RITUXIMAB
     Indication: Non-Hodgkin^s lymphoma
     Dosage: 6 CYCLES
     Route: 058
     Dates: start: 20190625, end: 20191009
  88. MABTHERA [Suspect]
     Active Substance: RITUXIMAB
     Dosage: 1 CYCLE
     Route: 058
     Dates: start: 20191113, end: 20191210
  89. MABTHERA [Suspect]
     Active Substance: RITUXIMAB
     Indication: Non-Hodgkin^s lymphoma
     Dosage: 1 CYCLE
     Route: 042
     Dates: start: 20191222, end: 20200113
  90. MABTHERA [Suspect]
     Active Substance: RITUXIMAB
     Indication: Diffuse large B-cell lymphoma
     Route: 042
  91. MABTHERA [Suspect]
     Active Substance: RITUXIMAB
     Indication: Leukopenia
  92. MABTHERA [Suspect]
     Active Substance: RITUXIMAB
     Indication: Hypertension
  93. MABTHERA [Suspect]
     Active Substance: RITUXIMAB
     Indication: Anaemia
  94. RITUXIMAB [Suspect]
     Active Substance: RITUXIMAB
     Indication: Diffuse large B-cell lymphoma
     Dosage: 3 CYCLES
     Route: 058
     Dates: start: 20190513, end: 20190625
  95. RITUXIMAB [Suspect]
     Active Substance: RITUXIMAB
     Dosage: 1400 MILLIGRAM, 1 CYCLE
     Route: 058
     Dates: start: 20191113, end: 20191210
  96. DOXORUBICIN HYDROCHLORIDE [Suspect]
     Active Substance: DOXORUBICIN HYDROCHLORIDE
     Indication: Diffuse large B-cell lymphoma
     Dosage: UNKNOWN
     Route: 065
  97. DOXORUBICIN HYDROCHLORIDE [Suspect]
     Active Substance: DOXORUBICIN HYDROCHLORIDE
     Indication: Non-Hodgkin^s lymphoma
  98. DOXORUBICIN HYDROCHLORIDE [Suspect]
     Active Substance: DOXORUBICIN HYDROCHLORIDE
     Indication: Leukopenia
  99. DOXORUBICIN HYDROCHLORIDE [Suspect]
     Active Substance: DOXORUBICIN HYDROCHLORIDE
     Indication: Anaemia
  100. DOXORUBICIN HYDROCHLORIDE [Suspect]
     Active Substance: DOXORUBICIN HYDROCHLORIDE
     Indication: Hypertension
  101. DOXORUBICIN [Suspect]
     Active Substance: DOXORUBICIN
     Indication: Non-Hodgkin^s lymphoma
     Route: 058
  102. DOXORUBICIN [Suspect]
     Active Substance: DOXORUBICIN
     Dosage: 8 CYCLES
     Route: 042
     Dates: start: 20190513, end: 20191009
  103. LOSEC [Suspect]
     Active Substance: OMEPRAZOLE
     Indication: Non-Hodgkin^s lymphoma
     Dosage: 1 CYCLES TWICE
     Route: 042
     Dates: start: 20191223, end: 20200113
  104. LOSEC [Suspect]
     Active Substance: OMEPRAZOLE
     Indication: Diffuse large B-cell lymphoma
     Route: 065
  105. LOSEC [Suspect]
     Active Substance: OMEPRAZOLE
     Indication: Leukopenia
  106. LOSEC [Suspect]
     Active Substance: OMEPRAZOLE
     Indication: Hypertension
  107. LOSEC [Suspect]
     Active Substance: OMEPRAZOLE
     Indication: Anaemia
  108. VALACYCLOVIR HYDROCHLORIDE [Suspect]
     Active Substance: VALACYCLOVIR HYDROCHLORIDE
     Indication: Product used for unknown indication
     Route: 065

REACTIONS (3)
  - Product use in unapproved indication [Unknown]
  - Diffuse large B-cell lymphoma refractory [Unknown]
  - Disease progression [Unknown]

NARRATIVE: CASE EVENT DATE: 20191223
